FAERS Safety Report 13058017 (Version 1)
Quarter: 2016Q4

REPORT INFORMATION
  Report Type: Spontaneous
  Country: US (occurrence: US)
  Receive Date: 20161222
  Receipt Date: 20161222
  Transmission Date: 20170207
  Serious: Yes (Other)
  Sender: FDA-Public Use
  Company Number: None

PATIENT
  Age: 5 Month
  Sex: Female
  Weight: 72 kg

DRUGS (1)
  1. LATUDA [Suspect]
     Active Substance: LURASIDONE HYDROCHLORIDE
     Indication: BIPOLAR DISORDER
     Route: 048
     Dates: start: 20150909, end: 20161222

REACTIONS (6)
  - Excessive eye blinking [None]
  - Arthropathy [None]
  - Protrusion tongue [None]
  - Dyskinesia [None]
  - Discomfort [None]
  - Muscle twitching [None]

NARRATIVE: CASE EVENT DATE: 20161222
